FAERS Safety Report 4905976-1 (Version None)
Quarter: 2006Q1

REPORT INFORMATION
  Report Type: 
  Country: None (occurrence: None)
  Receive Date: 20060206
  Receipt Date: 20060124
  Transmission Date: 20060701
  Serious: Yes (Hospitalization, Other)
  Sender: FDA-Public Use
  Company Number: 2005138701

PATIENT
  Age: 56 Year
  Sex: Male
  Weight: 77.1115 kg

DRUGS (5)
  1. LIPITOR [Suspect]
     Indication: HYPERLIPIDAEMIA
  2. ANTIHYPERTENSIVES (ANTIHYPERTENSIVES) [Suspect]
     Indication: ILL-DEFINED DISORDER
  3. IBUPROFEN [Concomitant]
  4. FORADIL [Concomitant]
  5. SPIRIVA [Concomitant]

REACTIONS (28)
  - ARTERIOSCLEROSIS [None]
  - ARTERIOSCLEROSIS CORONARY ARTERY [None]
  - ARTHROPATHY [None]
  - ASTHMA [None]
  - BLOOD CHOLESTEROL INCREASED [None]
  - BRONCHITIS [None]
  - BURNING SENSATION [None]
  - CHEST PAIN [None]
  - CHRONIC OBSTRUCTIVE PULMONARY DISEASE [None]
  - CONDITION AGGRAVATED [None]
  - CORONARY ARTERY DISEASE [None]
  - COUGH [None]
  - DILATATION ATRIAL [None]
  - DYSPNOEA [None]
  - DYSPNOEA EXERTIONAL [None]
  - ELECTROCARDIOGRAM ST-T CHANGE [None]
  - FATIGUE [None]
  - GRANULOMA [None]
  - HAEMATOCRIT DECREASED [None]
  - LUNG DISORDER [None]
  - LYMPHADENOPATHY [None]
  - MYOCARDIAL INFARCTION [None]
  - PRODUCTIVE COUGH [None]
  - PULMONARY FIBROSIS [None]
  - PULMONARY FUNCTION TEST ABNORMAL [None]
  - SCAR [None]
  - TRACHEAL DISORDER [None]
  - TREATMENT NONCOMPLIANCE [None]
